FAERS Safety Report 17390134 (Version 3)
Quarter: 2020Q3

REPORT INFORMATION
  Report Type: Report from Study
  Country: DE (occurrence: DE)
  Receive Date: 20200207
  Receipt Date: 20200814
  Transmission Date: 20201102
  Serious: Yes (Hospitalization)
  Sender: FDA-Public Use
  Company Number: DE-JNJFOC-20200203227

PATIENT
  Age: 6 Decade
  Sex: Female

DRUGS (7)
  1. SIMPONI [Suspect]
     Active Substance: GOLIMUMAB
     Indication: RHEUMATOID ARTHRITIS
     Route: 058
     Dates: start: 201101, end: 20191115
  2. FENOTEROL [Concomitant]
     Active Substance: FENOTEROL
  3. SIMPONI [Suspect]
     Active Substance: GOLIMUMAB
     Route: 058
     Dates: start: 20191216
  4. PREDNISOLONE. [Concomitant]
     Active Substance: PREDNISOLONE
  5. LEVOTHYROXIN [Concomitant]
     Active Substance: LEVOTHYROXINE
  6. ACC                                /00082801/ [Concomitant]
     Active Substance: ACETYLCYSTEINE
  7. AMBROXOL                           /00546002/ [Concomitant]
     Active Substance: AMBROXOL HYDROCHLORIDE

REACTIONS (3)
  - Bronchitis [Not Recovered/Not Resolved]
  - Product use issue [Unknown]
  - Off label use [Unknown]

NARRATIVE: CASE EVENT DATE: 20191113
